FAERS Safety Report 12812784 (Version 2)
Quarter: 2016Q4

REPORT INFORMATION
  Report Type: Spontaneous
  Country: US (occurrence: US)
  Receive Date: 20161005
  Receipt Date: 20161020
  Transmission Date: 20170207
  Serious: No
  Sender: FDA-Public Use
  Company Number: US-009507513-1609USA014822

PATIENT
  Sex: Female

DRUGS (1)
  1. FOSAMAX PLUS D [Suspect]
     Active Substance: ALENDRONATE SODIUM\CHOLECALCIFEROL
     Indication: OSTEOPOROSIS POSTMENOPAUSAL
     Route: 048

REACTIONS (1)
  - Oesophageal irritation [Unknown]
